FAERS Safety Report 7162623-9 (Version None)
Quarter: 2010Q4

REPORT INFORMATION
  Report Type: 
  Country: None (occurrence: None)
  Receive Date: 20101215
  Receipt Date: 20091202
  Transmission Date: 20110411
  Serious: Yes (Other)
  Sender: FDA-Public Use
  Company Number: US-PFIZER INC-2009298741

PATIENT
  Sex: Female
  Weight: 118.82 kg

DRUGS (3)
  1. LYRICA [Suspect]
     Indication: MENTAL DISORDER
     Dosage: 75 MG, 1X/DAY
     Route: 048
     Dates: start: 20091106, end: 20091111
  2. LYRICA [Suspect]
     Indication: CARPAL TUNNEL SYNDROME
  3. PREVACID [Concomitant]
     Dosage: UNK

REACTIONS (3)
  - FEELING ABNORMAL [None]
  - NEURALGIA [None]
  - PALPITATIONS [None]
